FAERS Safety Report 10514659 (Version 1)
Quarter: 2014Q4

REPORT INFORMATION
  Report Type: Report from Study
  Country: US (occurrence: US)
  Receive Date: 20141013
  Receipt Date: 20141013
  Transmission Date: 20150528
  Serious: Yes (Other)
  Sender: FDA-Public Use
  Company Number: US-ABBVIE-14K-163-1291848-00

PATIENT
  Age: 46 Year
  Sex: Male
  Weight: 65.83 kg

DRUGS (10)
  1. MULTIVITAMIN [Concomitant]
     Active Substance: VITAMINS
     Indication: VITAMIN SUPPLEMENTATION
  2. FLOMAX [Concomitant]
     Active Substance: TAMSULOSIN HYDROCHLORIDE
     Indication: DYSURIA
  3. CALCIUM WITH VITAMIN D [Concomitant]
     Active Substance: CALCIUM\VITAMIN D
     Indication: BONE DENSITY DECREASED
  4. ZANTAC [Concomitant]
     Active Substance: RANITIDINE HYDROCHLORIDE
     Indication: COLITIS ULCERATIVE
  5. MIRTAZAPINE. [Concomitant]
     Active Substance: MIRTAZAPINE
     Indication: NERVE COMPRESSION
  6. HYDROCODONE [Concomitant]
     Active Substance: HYDROCODONE
     Indication: PAIN
  7. TRAMADOL [Concomitant]
     Active Substance: TRAMADOL
     Indication: PAIN
  8. HUMIRA [Suspect]
     Active Substance: ADALIMUMAB
     Indication: RHEUMATOID ARTHRITIS
     Route: 065
     Dates: start: 200908, end: 200912
  9. HUMIRA [Suspect]
     Active Substance: ADALIMUMAB
     Route: 065
     Dates: start: 200912
  10. MIRTAZAPINE. [Concomitant]
     Active Substance: MIRTAZAPINE
     Indication: NEURALGIA

REACTIONS (13)
  - Anxiety [Not Recovered/Not Resolved]
  - Upper respiratory tract infection [Unknown]
  - Headache [Recovered/Resolved]
  - Muscle atrophy [Not Recovered/Not Resolved]
  - Rheumatoid arthritis [Not Recovered/Not Resolved]
  - Drug effect incomplete [Recovered/Resolved]
  - Hyperhidrosis [Recovered/Resolved]
  - Lung hyperinflation [Unknown]
  - Asthenopia [Not Recovered/Not Resolved]
  - Pyrexia [Recovered/Resolved]
  - Pulmonary mass [Not Recovered/Not Resolved]
  - Fatigue [Not Recovered/Not Resolved]
  - Chills [Recovered/Resolved]

NARRATIVE: CASE EVENT DATE: 200908
